FAERS Safety Report 6980260-3 (Version None)
Quarter: 2010Q3

REPORT INFORMATION
  Report Type: 
  Country: None (occurrence: None)
  Receive Date: 20100914
  Receipt Date: 20100901
  Transmission Date: 20110219
  Serious: Yes (Other)
  Sender: FDA-Public Use
  Company Number: BR-ELI_LILLY_AND_COMPANY-BR201009000722

PATIENT
  Age: 34 Year
  Sex: Female

DRUGS (1)
  1. ZYPREXA [Suspect]
     Dosage: 2.5 MG, UNKNOWN
     Route: 065

REACTIONS (5)
  - ASTHENIA [None]
  - HYPERSENSITIVITY [None]
  - INTESTINAL HAEMORRHAGE [None]
  - MUSCULAR WEAKNESS [None]
  - YELLOW SKIN [None]
